FAERS Safety Report 9781004 (Version 3)
Quarter: 2014Q1

REPORT INFORMATION
  Report Type: Spontaneous
  Country: US (occurrence: None)
  Receive Date: 20131220
  Receipt Date: 20140131
  Transmission Date: 20141002
  Serious: Yes (Other)
  Sender: FDA-Public Use
  Company Number: ADR-2013-02299

PATIENT
  Age: 49 Year
  Sex: Female

DRUGS (1)
  1. LIORESAL [Suspect]
     Indication: MUSCLE SPASTICITY

REACTIONS (8)
  - Muscular weakness [None]
  - Dehydration [None]
  - Somnolence [None]
  - Presyncope [None]
  - Panic reaction [None]
  - Sleep apnoea syndrome [None]
  - Respiratory disorder [None]
  - Movement disorder [None]
